FAERS Safety Report 5329417-8 (Version None)
Quarter: 2007Q2

REPORT INFORMATION
  Report Type: 
  Country: None (occurrence: None)
  Receive Date: 20070223
  Receipt Date: 20060809
  Transmission Date: 20071010
  Serious: Yes (Other)
  Sender: FDA-Public Use
  Company Number: WAES 0608USA02992

PATIENT
  Age: 72 Year
  Sex: Male
  Weight: 84.369 kg

DRUGS (7)
  1. ZOCOR [Suspect]
     Dosage: PO
     Route: 048
     Dates: end: 20060510
  2. ZOCOR [Suspect]
     Dosage: PO
     Route: 048
     Dates: start: 20000101
  3. ALTACE [Concomitant]
  4. PLAVIX [Concomitant]
  5. PROTONIX [Concomitant]
  6. ZYLOPRIM [Concomitant]
  7. ASPIRIN [Concomitant]

REACTIONS (1)
  - RHABDOMYOLYSIS [None]
